FAERS Safety Report 13239127 (Version 1)
Quarter: 2017Q1

REPORT INFORMATION
  Report Type: Spontaneous
  Country: BR (occurrence: BR)
  Receive Date: 20170216
  Receipt Date: 20170216
  Transmission Date: 20170428
  Serious: Yes (Other)
  Sender: FDA-Public Use
  Company Number: BR-PFIZER INC-2017062654

PATIENT
  Age: 57 Year
  Sex: Male
  Weight: 78 kg

DRUGS (2)
  1. XALATAN [Suspect]
     Active Substance: LATANOPROST
     Dosage: 1.5 UG 9ONE DROP IN RIGHT EYE), 2X/DAY (IN THE MORNING AND AT NIGHT)
     Route: 047
     Dates: start: 20130106
  2. AZORGA [Concomitant]
     Active Substance: BRINZOLAMIDE\TIMOLOL MALEATE
     Indication: EYE LUBRICATION THERAPY
     Dosage: 4 GTT, 2X/DAY (MORNING AND AFTERNOON)
     Route: 047

REACTIONS (3)
  - Intentional product misuse [Not Recovered/Not Resolved]
  - Blindness unilateral [Unknown]
  - Drug ineffective [Unknown]
